FAERS Safety Report 10016849 (Version 1)
Quarter: 2014Q1

REPORT INFORMATION
  Report Type: Spontaneous
  Country: JP (occurrence: JP)
  Receive Date: 20140318
  Receipt Date: 20140318
  Transmission Date: 20141002
  Serious: Yes (Hospitalization)
  Sender: FDA-Public Use
  Company Number: JP-009507513-1403JPN007408

PATIENT
  Sex: 0

DRUGS (1)
  1. LIPOVAS TABLETS 5 [Suspect]
     Route: 048

REACTIONS (1)
  - Pleural effusion [Unknown]
